FAERS Safety Report 25256357 (Version 1)
Quarter: 2025Q2

REPORT INFORMATION
  Report Type: Spontaneous
  Country: US (occurrence: US)
  Receive Date: 20250430
  Receipt Date: 20250430
  Transmission Date: 20250717
  Serious: No
  Sender: AMGEN
  Company Number: US-KYOWAKIRIN-2022AKK014576

PATIENT

DRUGS (1)
  1. FILGRASTIM [Suspect]
     Active Substance: FILGRASTIM
     Indication: Febrile neutropenia
     Route: 065

REACTIONS (3)
  - Musculoskeletal disorder [Unknown]
  - Drug specific antibody present [Unknown]
  - Injection site erythema [Unknown]
